FAERS Safety Report 19901863 (Version 1)
Quarter: 2021Q3

REPORT INFORMATION
  Report Type: Spontaneous
  Country: US (occurrence: US)
  Receive Date: 20210930
  Receipt Date: 20210930
  Transmission Date: 20211014
  Serious: Yes (Other)
  Sender: FDA-Public Use
  Company Number: US-AMGEN-USASP2021146613

PATIENT
  Sex: Male

DRUGS (1)
  1. LUMAKRAS [Suspect]
     Active Substance: SOTORASIB
     Indication: NON-SMALL CELL LUNG CANCER
     Dosage: 120 MILLIGRAM
     Route: 065
     Dates: start: 20210706

REACTIONS (2)
  - Non-small cell lung cancer [Unknown]
  - Product storage error [Unknown]

NARRATIVE: CASE EVENT DATE: 2021
